FAERS Safety Report 8945557 (Version 1)
Quarter: 2012Q4

REPORT INFORMATION
  Report Type: 
  Country: US (occurrence: US)
  Receive Date: 20121205
  Receipt Date: 20121205
  Transmission Date: 20130627
  Serious: Yes (Other)
  Sender: FDA-Public Use
  Company Number: US-PFIZER INC-2012304789

PATIENT
  Age: 61 Year
  Sex: Female
  Weight: 69.84 kg

DRUGS (2)
  1. CHANTIX [Suspect]
     Indication: SMOKING CESSATION THERAPY
     Dosage: 1 mg, 2x/day
     Dates: start: 2012, end: 20121201
  2. CLONIDINE [Concomitant]
     Dosage: UNK

REACTIONS (3)
  - Back disorder [Unknown]
  - Nausea [Unknown]
  - Nightmare [Unknown]
